FAERS Safety Report 16625334 (Version 3)
Quarter: 2020Q1

REPORT INFORMATION
  Report Type: Report from Study
  Country: US (occurrence: US)
  Receive Date: 20190724
  Receipt Date: 20200207
  Transmission Date: 20200409
  Serious: Yes (Hospitalization, Other)
  Sender: FDA-Public Use
  Company Number: US-ASTRAZENECA-2019SF04323

PATIENT
  Age: 80 Year
  Sex: Male

DRUGS (2)
  1. LUMOXITI [Suspect]
     Active Substance: MOXETUMOMAB PASUDOTOX-TDFK
     Indication: HAIRY CELL LEUKAEMIA
     Dosage: 0.04 MG/KG, ONE CYCLE (EVERY DAY 1, 3 AND 5)
     Route: 041
  2. LUMOXITI [Suspect]
     Active Substance: MOXETUMOMAB PASUDOTOX-TDFK
     Indication: HAIRY CELL LEUKAEMIA
     Dosage: REDUCED DOSE, ONCE A MONTH
     Route: 041
     Dates: start: 201903

REACTIONS (3)
  - Capillary leak syndrome [Recovered/Resolved]
  - Off label use [Not Recovered/Not Resolved]
  - Oedema [Unknown]
